FAERS Safety Report 24391819 (Version 1)
Quarter: 2024Q4

REPORT INFORMATION
  Report Type: Spontaneous
  Country: US (occurrence: None)
  Receive Date: 20241002
  Receipt Date: 20241002
  Transmission Date: 20250114
  Serious: No
  Sender: Public
  Company Number: None

PATIENT
  Age: 68 Year
  Sex: Male
  Weight: 72.57 kg

DRUGS (12)
  1. AMLODIPINE BESYLATE AND BENAZEPRIL HYDROCHLORIDE [Suspect]
     Active Substance: AMLODIPINE BESYLATE\BENAZEPRIL HYDROCHLORIDE
     Indication: Blood pressure increased
     Dosage: OTHER QUANTITY : 1 PILL;?FREQUENCY : DAILY;?
     Route: 048
     Dates: start: 20240803, end: 20240803
  2. AMLODIPINE [Concomitant]
     Active Substance: AMLODIPINE BESYLATE
  3. AZELASTINE [Concomitant]
     Active Substance: AZELASTINE
  4. SODIUM CHLORIDE [Concomitant]
     Active Substance: SODIUM CHLORIDE
  5. GUAIFENESIN [Concomitant]
     Active Substance: GUAIFENESIN
  6. DICLOFENAC [Concomitant]
     Active Substance: DICLOFENAC
  7. HYDROPHILIC TOPICAL OINT [Concomitant]
  8. CETIRIZINE HCL [Concomitant]
     Active Substance: CETIRIZINE HYDROCHLORIDE
  9. CYCLOBENZAPRINE HYDROCHLORIDE [Concomitant]
     Active Substance: CYCLOBENZAPRINE HYDROCHLORIDE
  10. H-WAVE [Concomitant]
  11. TERBINAFINE HYDROCHLORIDE [Concomitant]
     Active Substance: TERBINAFINE HYDROCHLORIDE
  12. HYDROCORTISONE [Concomitant]
     Active Substance: HYDROCORTISONE

REACTIONS (7)
  - Diarrhoea [None]
  - Gastrointestinal pain [None]
  - Diverticulum intestinal [None]
  - Haemorrhoids [None]
  - Anorectal discomfort [None]
  - Dehydration [None]
  - Therapy cessation [None]

NARRATIVE: CASE EVENT DATE: 20240803
